FAERS Safety Report 6041872-7 (Version None)
Quarter: 2009Q1

REPORT INFORMATION
  Report Type: 
  Country: None (occurrence: None)
  Receive Date: 20090116
  Receipt Date: 20090113
  Transmission Date: 20090719
  Serious: Yes (Death)
  Sender: FDA-Public Use
  Company Number: FR-BAYER-200911037GPV

PATIENT
  Age: 57 Year
  Sex: Male

DRUGS (7)
  1. FLUDARA [Suspect]
     Indication: CHRONIC LYMPHOCYTIC LEUKAEMIA
     Route: 048
  2. MABCAMPATH [Suspect]
     Indication: CHRONIC LYMPHOCYTIC LEUKAEMIA
     Route: 058
  3. ENDOXAN [Suspect]
     Indication: CHRONIC LYMPHOCYTIC LEUKAEMIA
     Route: 048
  4. PLAVIX [Suspect]
     Indication: DRUG USE FOR UNKNOWN INDICATION
  5. RITUXIMAB [Concomitant]
     Indication: NEOPLASM MALIGNANT
  6. CYCLOPHOSPHAMIDE W/VINCRISTINE/PREDNISONE [Concomitant]
     Indication: NEOPLASM MALIGNANT
  7. DOXORUBICIN HCL [Concomitant]

REACTIONS (1)
  - HAEMORRHAGIC STROKE [None]
